FAERS Safety Report 24445621 (Version 2)
Quarter: 2024Q4

REPORT INFORMATION
  Report Type: Spontaneous
  Country: JP (occurrence: JP)
  Receive Date: 20241016
  Receipt Date: 20241120
  Transmission Date: 20250114
  Serious: Yes (Life-Threatening, Other)
  Sender: BIOCRYST PHARMACEUTICALS
  Company Number: JP-BIOCRYST PHARMACEUTICALS, INC.-2024BCR01063

PATIENT

DRUGS (1)
  1. RAPIACTA [Suspect]
     Active Substance: PERAMIVIR
     Indication: Influenza
     Dosage: 300 MG, ONCE
     Route: 042
     Dates: start: 20231202, end: 20231202

REACTIONS (1)
  - Anaphylactic shock [Recovered/Resolved]

NARRATIVE: CASE EVENT DATE: 20231202
